FAERS Safety Report 5345847-2 (Version None)
Quarter: 2007Q2

REPORT INFORMATION
  Report Type: 
  Country: None (occurrence: None)
  Receive Date: 20070605
  Receipt Date: 20070531
  Transmission Date: 20071010
  Serious: Yes (Death)
  Sender: FDA-Public Use
  Company Number: US-ASTRAZENECA-2006UW08379

PATIENT
  Sex: Female

DRUGS (6)
  1. SEROQUEL [Suspect]
     Indication: MENTAL DISORDER
     Route: 048
     Dates: start: 20020101, end: 20030101
  2. SULAR [Concomitant]
  3. PROTONIX [Concomitant]
  4. EXELON [Concomitant]
  5. ARICEPT [Concomitant]
  6. DEXATRIM [Concomitant]
     Indication: WEIGHT CONTROL

REACTIONS (2)
  - DEATH [None]
  - DIABETES MELLITUS [None]
